FAERS Safety Report 22396384 (Version 1)
Quarter: 2023Q2

REPORT INFORMATION
  Report Type: Spontaneous
  Country: US (occurrence: US)
  Receive Date: 20230601
  Receipt Date: 20230601
  Transmission Date: 20230722
  Serious: No
  Sender: FDA-Public Use
  Company Number: US-ALLERGAN-2304346US

PATIENT
  Sex: Female
  Weight: 88.4 kg

DRUGS (5)
  1. BOTOX [Suspect]
     Active Substance: ONABOTULINUMTOXINA
     Indication: Muscle twitching
     Dosage: UNK, SINGLE
     Dates: start: 20230124, end: 20230124
  2. BOTOX [Suspect]
     Active Substance: ONABOTULINUMTOXINA
     Dosage: UNK, SINGLE
     Dates: start: 20230124, end: 20230124
  3. BOTOX [Suspect]
     Active Substance: ONABOTULINUMTOXINA
     Dosage: UNK, SINGLE
     Dates: start: 20230124, end: 20230124
  4. BOTOX [Suspect]
     Active Substance: ONABOTULINUMTOXINA
     Dosage: UNK, SINGLE
     Dates: start: 20230124, end: 20230124
  5. BOTOX [Suspect]
     Active Substance: ONABOTULINUMTOXINA
     Dosage: UNK, SINGLE
     Dates: start: 20210928, end: 20210928

REACTIONS (4)
  - Muscle strain [Unknown]
  - Hypoaesthesia [Unknown]
  - Muscle twitching [Unknown]
  - Off label use [Unknown]

NARRATIVE: CASE EVENT DATE: 20230101
